FAERS Safety Report 21574424 (Version 1)
Quarter: 2022Q4

REPORT INFORMATION
  Report Type: Spontaneous
  Country: US (occurrence: None)
  Receive Date: 20221108
  Receipt Date: 20221108
  Transmission Date: 20230113
  Serious: No
  Sender: FDA-Public Use
  Company Number: None

PATIENT
  Age: 79 Year
  Sex: Female
  Weight: 147.87 kg

DRUGS (21)
  1. IBRANCE [Suspect]
     Active Substance: PALBOCICLIB
     Indication: Breast cancer female
     Dosage: OTHER FREQUENCY : 21D ON 7D OFF ;?
     Route: 048
  2. ALLOPURINOL [Concomitant]
  3. AMIODARONE [Concomitant]
  4. ANASTROZOLE [Concomitant]
  5. ATORVASTATIN [Concomitant]
  6. CARVEDILOL [Concomitant]
     Active Substance: CARVEDILOL
  7. CEPHALEXIN [Concomitant]
  8. ELIQUIS [Concomitant]
  9. ENTRESTO [Concomitant]
  10. FOLIC ACID [Concomitant]
  11. FULVESTRANT [Concomitant]
  12. LEVEMIR [Concomitant]
  13. LEVOTHYROXINE [Concomitant]
  14. NOVOLOG [Concomitant]
  15. POTASSIUM CHLORIDE [Concomitant]
  16. PROMACTA [Concomitant]
  17. TORSEMIDE [Concomitant]
  18. TYLENOL [Concomitant]
  19. VITAMIN B12 [Concomitant]
  20. VITAMIN D3 [Concomitant]
  21. ZOMETA [Concomitant]

REACTIONS (1)
  - Hospice care [None]
